FAERS Safety Report 5085139-2 (Version None)
Quarter: 2006Q3

REPORT INFORMATION
  Report Type: 
  Country: None (occurrence: None)
  Receive Date: 20060822
  Receipt Date: 20060810
  Transmission Date: 20061208
  Serious: Yes (Other)
  Sender: FDA-Public Use
  Company Number: PHBS2006IT12243

PATIENT
  Age: 80 Year
  Sex: Female

DRUGS (3)
  1. ZOMETA [Suspect]
     Dosage: 4 MG, QMO
     Route: 042
     Dates: start: 20040922, end: 20060329
  2. XELODA [Concomitant]
     Dosage: 150 MG/D
     Route: 048
     Dates: start: 20060101
  3. XELODA [Concomitant]
     Dosage: 500 MG/D
     Route: 048
     Dates: start: 20060101

REACTIONS (2)
  - OSTEONECROSIS [None]
  - OSTEOSCLEROSIS [None]
